FAERS Safety Report 9338599 (Version 3)
Quarter: 2013Q3

REPORT INFORMATION
  Report Type: Report from Study
  Country: US (occurrence: US)
  Receive Date: 20130610
  Receipt Date: 20130728
  Transmission Date: 20140515
  Serious: Yes (Death)
  Sender: FDA-Public Use
  Company Number: PHEH2013US012375

PATIENT
  Sex: Female
  Weight: 48.98 kg

DRUGS (7)
  1. AFINITOR [Suspect]
     Indication: BREAST CANCER METASTATIC
     Dosage: 10 MG, QD
     Route: 048
     Dates: start: 20121120, end: 20130425
  2. DOXIL [Concomitant]
     Indication: BREAST CANCER METASTATIC
     Dosage: 60 MG, FOR EVERY 28 DAYS
     Route: 042
     Dates: start: 20130502, end: 20130502
  3. ZOMETA [Concomitant]
     Indication: METASTASES TO BONE
     Dosage: 3.5 MG, EVERY FOUR WEEKS
     Dates: start: 20111220, end: 20130409
  4. AROMASIN [Concomitant]
     Indication: BREAST CANCER METASTATIC
     Dosage: 25 MG, QD
     Route: 048
     Dates: start: 20121120, end: 20130425
  5. XGEVA [Concomitant]
     Indication: METASTASES TO BONE
     Dosage: 120 MG, FOR FOUR WEEKS
     Route: 058
     Dates: start: 20130501, end: 20130507
  6. NAVELBINE [Concomitant]
     Indication: BREAST CANCER METASTATIC
     Dosage: 37 MG, UNK
     Route: 042
     Dates: start: 20130530, end: 20130530
  7. GEMZAR [Concomitant]
     Indication: BREAST CANCER METASTATIC
     Dosage: 1482 MG, UNK
     Route: 042
     Dates: start: 20130530, end: 20130530

REACTIONS (3)
  - Breast cancer metastatic [Fatal]
  - Malignant neoplasm progression [Fatal]
  - Drug ineffective [Unknown]
